FAERS Safety Report 7058614-9 (Version None)
Quarter: 2010Q4

REPORT INFORMATION
  Report Type: 
  Country: None (occurrence: None)
  Receive Date: 20101022
  Receipt Date: 20101014
  Transmission Date: 20110411
  Serious: Yes (Hospitalization)
  Sender: FDA-Public Use
  Company Number: B0672237A

PATIENT
  Sex: Female
  Weight: 58 kg

DRUGS (7)
  1. TYKERB [Suspect]
     Indication: BREAST CANCER
     Dosage: 1250MG PER DAY
     Route: 048
     Dates: start: 20100219, end: 20100708
  2. XELODA [Suspect]
     Indication: PRODUCT USED FOR UNKNOWN INDICATION
     Dosage: 2400MG PER DAY
     Route: 048
     Dates: start: 20090703, end: 20100701
  3. TAXOL [Concomitant]
     Indication: BREAST CANCER
     Dosage: 120MG PER DAY
     Route: 042
     Dates: start: 20070906, end: 20080227
  4. HERCEPTIN [Concomitant]
     Indication: BREAST CANCER
     Dosage: 115MG PER DAY
     Route: 042
     Dates: start: 20070906, end: 20100205
  5. NAVELBINE [Concomitant]
     Indication: BREAST CANCER
     Dosage: 35MG PER DAY
     Route: 042
     Dates: start: 20080327, end: 20090619
  6. LOPEMIN [Concomitant]
     Route: 048
     Dates: start: 20100219
  7. HIRUDOID [Concomitant]
     Indication: PROPHYLAXIS
     Route: 061
     Dates: start: 20100219, end: 20100611

REACTIONS (5)
  - GRANULOMA [None]
  - HEPATIC FUNCTION ABNORMAL [None]
  - PALMAR-PLANTAR ERYTHRODYSAESTHESIA SYNDROME [None]
  - PARONYCHIA [None]
  - PRURIGO [None]
